FAERS Safety Report 8305399-1 (Version None)
Quarter: 2012Q2

REPORT INFORMATION
  Report Type: 
  Country: None (occurrence: None)
  Receive Date: 20120423
  Receipt Date: 20120416
  Transmission Date: 20120825
  Serious: Yes (Hospitalization)
  Sender: FDA-Public Use
  Company Number: JP-BRISTOL-MYERS SQUIBB COMPANY-16530644

PATIENT
  Age: 64 Year
  Sex: Male
  Weight: 51 kg

DRUGS (3)
  1. S-1 [Suspect]
     Indication: GASTRIC CANCER
     Dosage: CAP, 4TH CYCLE,14MAR12 3WEEK ON, 2WEEK OFF
     Route: 048
     Dates: start: 20111128
  2. LANSOPRAZOLE [Concomitant]
     Dosage: 1 DF:1 TAB
     Route: 048
     Dates: start: 20120208
  3. CISPLATIN [Suspect]
     Indication: GASTRIC CANCER
     Dosage: 28NOV11 COMBINATION THERAPY STARTED, 88MG/BODY. 14MAR12, 4TH CYCLE LAST DOSE ON:21MAR12
     Route: 042
     Dates: start: 20111128

REACTIONS (1)
  - APPENDICITIS [None]
